FAERS Safety Report 7215523-X (Version None)
Quarter: 2011Q1

REPORT INFORMATION
  Report Type: 
  Country: None (occurrence: None)
  Receive Date: 20110107
  Receipt Date: 20110104
  Transmission Date: 20110831
  Serious: Yes (Hospitalization)
  Sender: FDA-Public Use
  Company Number: B0692080A

PATIENT
  Age: 35 Year
  Sex: Female

DRUGS (3)
  1. UNSPECIFIED DRUG [Suspect]
     Indication: SUICIDE ATTEMPT
     Route: 048
     Dates: start: 20110104, end: 20110104
  2. AUGMENTIN [Suspect]
     Indication: SUICIDE ATTEMPT
     Dosage: 16G PER DAY
     Route: 048
     Dates: start: 20110104, end: 20110104
  3. AUGMENTIN '125' [Concomitant]
     Route: 065

REACTIONS (3)
  - INTENTIONAL OVERDOSE [None]
  - JAUNDICE [None]
  - SUICIDE ATTEMPT [None]
